FAERS Safety Report 9395090 (Version 3)
Quarter: 2013Q4

REPORT INFORMATION
  Report Type: Spontaneous
  Country: US (occurrence: US)
  Receive Date: 20130711
  Receipt Date: 20131204
  Transmission Date: 20140711
  Serious: Yes (Life-Threatening, Hospitalization)
  Sender: FDA-Public Use
  Company Number: US-BAYER-2013-083736

PATIENT
  Age: 21 Year
  Sex: Female
  Weight: 61.22 kg

DRUGS (3)
  1. YASMIN [Suspect]
     Indication: ACNE
     Dosage: UNK
     Dates: start: 20061222, end: 200802
  2. YASMIN [Suspect]
     Indication: CONTRACEPTION
  3. IBUPROFENE [Concomitant]
     Indication: PAIN
     Dosage: AS NEEDED
     Dates: start: 2001, end: 2008

REACTIONS (7)
  - Pelvic venous thrombosis [Recovered/Resolved]
  - Deep vein thrombosis [Recovering/Resolving]
  - Vena cava thrombosis [Recovering/Resolving]
  - Thrombosis [None]
  - Pain [Recovered/Resolved]
  - Injury [Recovered/Resolved]
  - Local swelling [Recovered/Resolved]
